FAERS Safety Report 19659840 (Version 1)
Quarter: 2021Q3

REPORT INFORMATION
  Report Type: Spontaneous
  Country: US (occurrence: US)
  Receive Date: 20210804
  Receipt Date: 20210804
  Transmission Date: 20211014
  Serious: No
  Sender: FDA-Public Use
  Company Number: None

PATIENT
  Age: 46 Year
  Sex: Male
  Weight: 110.22 kg

DRUGS (1)
  1. DOLUTEGRAVIR/RILPIVIRINE [Suspect]
     Active Substance: DOLUTEGRAVIR SODIUM\RILPIVIRINE HYDROCHLORIDE
     Indication: HIV INFECTION
     Dosage: ?          OTHER DOSE:50/25 MG;?
     Route: 048
     Dates: start: 20210413, end: 20210607

REACTIONS (6)
  - Decreased appetite [None]
  - Hyperglycaemia [None]
  - Asthenia [None]
  - Vision blurred [None]
  - Polydipsia [None]
  - Fatigue [None]

NARRATIVE: CASE EVENT DATE: 20210518
